FAERS Safety Report 15920404 (Version 2)
Quarter: 2019Q1

REPORT INFORMATION
  Report Type: Spontaneous
  Country: US (occurrence: US)
  Receive Date: 20190205
  Receipt Date: 20190306
  Transmission Date: 20190417
  Serious: Yes (Congenital Anomaly, Other)
  Sender: FDA-Public Use
  Company Number: PHEH2019US005169

PATIENT

DRUGS (1)
  1. ZOFRAN [Suspect]
     Active Substance: ONDANSETRON HYDROCHLORIDE
     Indication: FOETAL EXPOSURE DURING PREGNANCY
     Route: 064

REACTIONS (11)
  - Congenital tricuspid valve stenosis [Unknown]
  - Pain [Unknown]
  - Coronary artery disease [Unknown]
  - Pulmonary artery atresia [Unknown]
  - Respiratory disorder [Unknown]
  - Emotional distress [Unknown]
  - Ventricular hypoplasia [Unknown]
  - Deformity [Unknown]
  - Injury [Unknown]
  - Foetal exposure during pregnancy [Unknown]
  - Anhedonia [Unknown]
